FAERS Safety Report 4589135-0 (Version None)
Quarter: 2005Q1

REPORT INFORMATION
  Report Type: 
  Country: None (occurrence: None)
  Receive Date: 20050125
  Receipt Date: 20040903
  Transmission Date: 20050727
  Serious: No
  Sender: FDA-Public Use
  Company Number: USA040671171

PATIENT
  Sex: Female
  Weight: 77 kg

DRUGS (13)
  1. EVISTA [Suspect]
     Dates: start: 20040624
  2. FORTEO [Suspect]
     Indication: OSTEOPOROSIS
     Dosage: 20 UG/1 DAY
     Dates: start: 20040806
  3. NEXIUM [Concomitant]
  4. LASIX [Concomitant]
  5. FLUTICASONE PROPIONATE W/SALMETEROL [Concomitant]
  6. PROVENTIL [Concomitant]
  7. CALCIUM ITRATE W/VITAMIN D NOS [Concomitant]
  8. OCUVITE [Concomitant]
  9. VITAMIN E [Concomitant]
  10. MULTIVITAMIN [Concomitant]
  11. TYLENOL [Concomitant]
  12. TAMBOCOR (CLECAINIDE ACETATE) [Concomitant]
  13. INSPRA [Concomitant]

REACTIONS (2)
  - ASTHMA [None]
  - CARDIAC DISORDER [None]
